FAERS Safety Report 5318358-8 (Version None)
Quarter: 2007Q2

REPORT INFORMATION
  Report Type: 
  Country: None (occurrence: None)
  Receive Date: 20070507
  Receipt Date: 20070424
  Transmission Date: 20071010
  Serious: Yes (Life-Threatening)
  Sender: FDA-Public Use
  Company Number: JP-SHR-JP-2007-015061

PATIENT
  Age: 75 Year
  Sex: Male

DRUGS (5)
  1. SOTALOL HCL [Suspect]
     Dosage: 40 MG, 2X/DAY
     Route: 048
     Dates: start: 20060512, end: 20070103
  2. LASIX [Concomitant]
  3. KALIMATE [Concomitant]
  4. FERO-GRAD [Concomitant]
  5. KREMEZIN [Concomitant]

REACTIONS (2)
  - RENAL FAILURE CHRONIC [None]
  - SINUS ARREST [None]
